FAERS Safety Report 8617294-9 (Version None)
Quarter: 2012Q3

REPORT INFORMATION
  Report Type: 
  Country: None (occurrence: None)
  Receive Date: 20120823
  Receipt Date: 20120810
  Transmission Date: 20120928
  Serious: No
  Sender: FDA-Public Use
  Company Number: US-ASTRAZENECA-2012SE57134

PATIENT
  Age: 32 Year
  Sex: Male

DRUGS (3)
  1. NEXIUM [Suspect]
     Route: 048
     Dates: start: 20110512
  2. PRAVASTATIN [Concomitant]
  3. AMITIZA [Concomitant]

REACTIONS (8)
  - OEDEMA GENITAL [None]
  - DIARRHOEA [None]
  - CONSTIPATION [None]
  - ESSENTIAL HYPERTENSION [None]
  - HYPERCHOLESTEROLAEMIA [None]
  - GASTROINTESTINAL HAEMORRHAGE [None]
  - IRRITABLE BOWEL SYNDROME [None]
  - ANOGENITAL WARTS [None]
